FAERS Safety Report 9296177 (Version 1)
Quarter: 2013Q2

REPORT INFORMATION
  Report Type: Spontaneous
  Country: BR (occurrence: BR)
  Receive Date: 20130517
  Receipt Date: 20130517
  Transmission Date: 20140414
  Serious: Yes (Other)
  Sender: FDA-Public Use
  Company Number: BR-JNJFOC-20130507483

PATIENT
  Age: 26 Year
  Sex: Male
  Weight: 52 kg

DRUGS (1)
  1. HALDOL [Suspect]
     Indication: CONFUSIONAL STATE
     Route: 048
     Dates: start: 20130509

REACTIONS (3)
  - General physical health deterioration [Not Recovered/Not Resolved]
  - Dysphonia [Not Recovered/Not Resolved]
  - Sedation [Not Recovered/Not Resolved]
